FAERS Safety Report 4514498-1 (Version None)
Quarter: 2004Q4

REPORT INFORMATION
  Report Type: 
  Country: None (occurrence: None)
  Receive Date: 20041126
  Receipt Date: 20041109
  Transmission Date: 20050328
  Serious: Yes (Death)
  Sender: FDA-Public Use
  Company Number: PIR0411015B

PATIENT
  Sex: Female
  Weight: 16 kg

DRUGS (2)
  1. TROPHAMINE [Suspect]
     Indication: MALABSORPTION
     Dosage: 30 GM, TPN DAILY
     Dates: start: 20040429, end: 20040826
  2. ALSO INCLUDED IN TPN-20% INTRALIPID, DEXTROSE 5%, MVI, ZANTAC [Concomitant]

REACTIONS (2)
  - DISSEMINATED INTRAVASCULAR COAGULATION [None]
  - HEPATIC ENZYME INCREASED [None]
